FAERS Safety Report 19493919 (Version 1)
Quarter: 2021Q3

REPORT INFORMATION
  Report Type: Spontaneous
  Country: US (occurrence: US)
  Receive Date: 20210705
  Receipt Date: 20210705
  Transmission Date: 20211014
  Serious: No
  Sender: FDA-Public Use
  Company Number: US-009507513-2107USA000830

PATIENT
  Sex: Female
  Weight: 95.69 kg

DRUGS (13)
  1. COMPAZINE [Concomitant]
     Active Substance: PROCHLORPERAZINE MALEATE
  2. MAGNESIUM [Concomitant]
     Active Substance: MAGNESIUM
  3. TRAMADOL HCL [Concomitant]
     Active Substance: TRAMADOL HYDROCHLORIDE
  4. ZZZQUIL NIGHTTIME SLEEP?AID [Concomitant]
     Active Substance: DIPHENHYDRAMINE HYDROCHLORIDE
  5. KEYTRUDA [Suspect]
     Active Substance: PEMBROLIZUMAB
     Dosage: UNK
  6. LENVATINIB MESYLATE [Suspect]
     Active Substance: LENVATINIB MESYLATE
     Indication: ENDOMETRIAL NEOPLASM
     Dosage: 14 MILLIGRAM, QD
     Route: 048
     Dates: start: 20210520, end: 20210610
  7. MODERNA COVID?19 VACCINE [Concomitant]
     Active Substance: CX-024414
  8. ZOFRAN [Concomitant]
     Active Substance: ONDANSETRON HYDROCHLORIDE
  9. VASCEPA [Concomitant]
     Active Substance: ICOSAPENT ETHYL
  10. OZEMPIC [Concomitant]
     Active Substance: SEMAGLUTIDE
  11. TYLENOL [Concomitant]
     Active Substance: ACETAMINOPHEN
  12. VITAMIN D3 [Concomitant]
     Active Substance: CHOLECALCIFEROL
  13. GLIMEPIRIDE. [Concomitant]
     Active Substance: GLIMEPIRIDE

REACTIONS (9)
  - Oropharyngeal pain [Unknown]
  - Blood pressure abnormal [Unknown]
  - Arthralgia [Unknown]
  - Thyroid disorder [Unknown]
  - Adverse event [Unknown]
  - Decreased appetite [Unknown]
  - Aphonia [Unknown]
  - Heart rate abnormal [Unknown]
  - Pain [Unknown]
